FAERS Safety Report 17454611 (Version 1)
Quarter: 2020Q1

REPORT INFORMATION
  Report Type: Spontaneous
  Country: US (occurrence: US)
  Receive Date: 20200211
  Receipt Date: 20200211
  Transmission Date: 20200409
  Serious: Yes (Hospitalization)
  Sender: FDA-Public Use
  Company Number: None

PATIENT
  Age: 52 Year
  Sex: Male

DRUGS (11)
  1. ERLEADA [Suspect]
     Active Substance: APALUTAMIDE
     Indication: PROSTATE CANCER
     Route: 048
     Dates: start: 20200117
  2. APIDRA [Concomitant]
     Active Substance: INSULIN GLULISINE
  3. TOPIRAMATE. [Concomitant]
     Active Substance: TOPIRAMATE
  4. ONDANSETRON [Concomitant]
     Active Substance: ONDANSETRON
  5. RABEPRAZOLE [Concomitant]
     Active Substance: RABEPRAZOLE
  6. BD PEN NEEDL MIS [Concomitant]
  7. TRESIBA FLEX [Concomitant]
  8. CEFUROXIME. [Concomitant]
     Active Substance: CEFUROXIME
  9. PANTOPRAZOLE [Concomitant]
     Active Substance: PANTOPRAZOLE
  10. TRAMADOL HCL [Concomitant]
     Active Substance: TRAMADOL HYDROCHLORIDE
  11. SPIRONOLACT [Concomitant]
     Active Substance: SPIRONOLACTONE

REACTIONS (4)
  - Bartter^s syndrome [None]
  - Malaise [None]
  - Pruritus [None]
  - Asthenia [None]

NARRATIVE: CASE EVENT DATE: 20200207
